FAERS Safety Report 23994067 (Version 9)
Quarter: 2025Q4

REPORT INFORMATION
  Report Type: Spontaneous
  Country: CA (occurrence: CA)
  Receive Date: 20240620
  Receipt Date: 20251014
  Transmission Date: 20260117
  Serious: Yes (Other)
  Sender: CELLTRION
  Company Number: CA-PFIZER INC-202300441284

PATIENT

DRUGS (14)
  1. INFLECTRA [Suspect]
     Active Substance: INFLIXIMAB-DYYB
     Indication: Crohn^s disease
     Dosage: 500 MG, INDUCTION WEEKS 0, 2, 6 MAINTENANCE EVERY 8 WEEKS
     Route: 042
     Dates: start: 20240111
  2. INFLECTRA [Suspect]
     Active Substance: INFLIXIMAB-DYYB
     Dosage: 500 MG, INDUCTION WEEKS 0, 2, 6 MAINTENANCE EVERY 8 WEEKS
     Route: 042
     Dates: start: 20240416
  3. INFLECTRA [Suspect]
     Active Substance: INFLIXIMAB-DYYB
     Dosage: 500 MG, AFTER 8 WEEKS AND 2 DAYS (PRESCRIBED EVERY 8 WEEKS)
     Route: 042
     Dates: start: 20240613
  4. INFLECTRA [Suspect]
     Active Substance: INFLIXIMAB-DYYB
     Dosage: 500MG AFTER 10 WEEKS 4 DAYS (500 MG, INDUCTION WEEKS 0, 2, 6 MAINTENANCE EVERY 8 WEEKS)
     Route: 042
     Dates: start: 20240826
  5. INFLECTRA [Suspect]
     Active Substance: INFLIXIMAB-DYYB
     Dosage: 500 MG, INDUCTION WEEKS 0, 2, 6 MAINTENANCE Q 8 WEEKS
     Route: 042
     Dates: start: 20241216
  6. INFLECTRA [Suspect]
     Active Substance: INFLIXIMAB-DYYB
     Dosage: 500 MG, 8 WEEKS (INDUCTION WEEKS 0, 2, 6 MAINTENANCE Q 8 WEEKS)
     Route: 042
     Dates: start: 20250210
  7. INFLECTRA [Suspect]
     Active Substance: INFLIXIMAB-DYYB
     Dosage: 500 MG, 8 WEEKS (INDUCTION WEEKS 0, 2, 6 MAINTENANCE Q 8 WEEKS)
     Route: 042
     Dates: start: 20250407
  8. INFLECTRA [Suspect]
     Active Substance: INFLIXIMAB-DYYB
     Dosage: 500 MG, AFTER 10 WEEKS AND 3 DAYS (INDUCTION WEEKS 0, 2, 6 MAINTENANCE Q 8 WEEKS)
     Route: 042
     Dates: start: 20250619
  9. INFLECTRA [Suspect]
     Active Substance: INFLIXIMAB-DYYB
     Dosage: 500 MG, 8 WEEKS (INDUCTION WEEKS 0, 2, 6 MAINTENANCE Q 8 WEEKS )
     Route: 042
     Dates: start: 20250814
  10. BUPROPION [Concomitant]
     Active Substance: BUPROPION
     Dosage: UNK
  11. LAMOTRIGINE [Concomitant]
     Active Substance: LAMOTRIGINE
     Dosage: UNK
  12. MIRTAZAPINE [Concomitant]
     Active Substance: MIRTAZAPINE
     Dosage: UNK
  13. NALTREXONE [Concomitant]
     Active Substance: NALTREXONE
     Dosage: UNK
  14. OLANZAPINE [Concomitant]
     Active Substance: OLANZAPINE
     Dosage: UNK

REACTIONS (6)
  - Uveitis [Recovered/Resolved]
  - Anal fissure [Recovered/Resolved]
  - Arthralgia [Recovered/Resolved]
  - Off label use [Unknown]
  - Intentional product use issue [Unknown]
  - Inappropriate schedule of product administration [Unknown]

NARRATIVE: CASE EVENT DATE: 20240613
